FAERS Safety Report 6895508-3 (Version None)
Quarter: 2010Q3

REPORT INFORMATION
  Report Type: 
  Country: None (occurrence: None)
  Receive Date: 20100802
  Receipt Date: 20100727
  Transmission Date: 20110219
  Serious: Yes (Other)
  Sender: FDA-Public Use
  Company Number: AT-BRISTOL-MYERS SQUIBB COMPANY-15211618

PATIENT
  Age: 67 Year
  Sex: Female

DRUGS (11)
  1. ORENCIA [Suspect]
     Indication: RHEUMATOID ARTHRITIS
     Dosage: 3MG/KG CYC1 13JA10 CYC2 10FB10 CYC3 10MR10 CYC4 15AP10 CYC5 05MY10 CYC6 08JN10 CYC7 15JL10
     Route: 042
     Dates: start: 20100113
  2. METHOTREXATE [Interacting]
     Route: 048
  3. PANTOPRAZOLE [Concomitant]
     Route: 048
  4. METFORMIN HCL [Concomitant]
     Route: 048
  5. ACETYLSALICYLIC ACID SRT [Concomitant]
     Route: 048
  6. TELMISARTAN + HCTZ [Concomitant]
     Route: 048
  7. FOLIC ACID [Concomitant]
     Route: 048
  8. SILIBININ [Concomitant]
     Route: 048
  9. FLAVONID [Concomitant]
     Dosage: DF=500MG DIOSMINE 450 MG + HESPERIDINE 50 MG
     Route: 048
  10. PARACETAMOL [Concomitant]
     Route: 048
  11. DICLOFENAC [Concomitant]
     Route: 048

REACTIONS (5)
  - ABDOMINAL PAIN [None]
  - CIRCULATORY COLLAPSE [None]
  - DIARRHOEA [None]
  - DRUG INTERACTION [None]
  - NAUSEA [None]
